FAERS Safety Report 8470402-5 (Version None)
Quarter: 2012Q2

REPORT INFORMATION
  Report Type: 
  Country: None (occurrence: None)
  Receive Date: 20120627
  Receipt Date: 20120620
  Transmission Date: 20120825
  Serious: Yes (Hospitalization)
  Sender: FDA-Public Use
  Company Number: US-AMGEN-USASP2011066931

PATIENT
  Age: 62 Year
  Sex: Female

DRUGS (2)
  1. ENBREL [Suspect]
     Indication: RHEUMATOID ARTHRITIS
     Dosage: 50 MG, QWK
     Dates: start: 20060101
  2. METHOTREXATE [Concomitant]
     Dosage: 1 MG, QWK

REACTIONS (4)
  - BACK PAIN [None]
  - ONYCHOMYCOSIS [None]
  - SINUSITIS [None]
  - ARTHROPATHY [None]
